FAERS Safety Report 13984808 (Version 1)
Quarter: 2017Q3

REPORT INFORMATION
  Report Type: Report from Study
  Country: IT (occurrence: IT)
  Receive Date: 20170918
  Receipt Date: 20170918
  Transmission Date: 20171128
  Serious: Yes (Life-Threatening)
  Sender: FDA-Public Use
  Company Number: IT-ROCHE-1993822

PATIENT
  Age: 40 Year
  Sex: Male
  Weight: 72 kg

DRUGS (3)
  1. BEVACIZUMAB. [Suspect]
     Active Substance: BEVACIZUMAB
     Indication: COLORECTAL CANCER METASTATIC
     Dosage: DATE OF MOST RECENT DOSE GIVEN PRIOR TO SAE: 23/AUG/2017 (360MG)
     Route: 042
     Dates: start: 20170517, end: 20170830
  2. 5-FU [Suspect]
     Active Substance: FLUOROURACIL
     Indication: COLORECTAL CANCER METASTATIC
     Dosage: DOSE: 760MG, 4500MG  ?DATE OF MOST RECENT DOSE GIVEN PRIOR TO SAE: 23/AUG/2017 (760MG, 4500MG)
     Route: 042
     Dates: start: 20170517, end: 20170830
  3. OXALIPLATIN. [Suspect]
     Active Substance: OXALIPLATIN
     Indication: COLORECTAL CANCER METASTATIC
     Dosage: DATE OF MOST RECENT DOSE GIVEN PRIOR TO SAE: 23/AUG/2017 (161MG)
     Route: 042
     Dates: start: 20170517, end: 20170830

REACTIONS (1)
  - Intestinal obstruction [Recovered/Resolved with Sequelae]

NARRATIVE: CASE EVENT DATE: 20170830
